FAERS Safety Report 7521455-X (Version None)
Quarter: 2011Q2

REPORT INFORMATION
  Report Type: 
  Country: None (occurrence: None)
  Receive Date: 20110603
  Receipt Date: 20110520
  Transmission Date: 20111010
  Serious: Yes (Hospitalization, Other)
  Sender: FDA-Public Use
  Company Number: US-BAYER-201036331NA

PATIENT
  Sex: Female
  Weight: 50.794 kg

DRUGS (7)
  1. PREVACID [Concomitant]
  2. YASMIN [Suspect]
     Route: 048
     Dates: start: 20030101, end: 20100601
  3. LEVLITE [Concomitant]
  4. ALLEGRA [Concomitant]
  5. YAZ [Suspect]
     Route: 048
     Dates: start: 20030101, end: 20100601
  6. ZOLOFT [Concomitant]
  7. PROTONIX [Concomitant]

REACTIONS (3)
  - CHOLECYSTITIS CHRONIC [None]
  - GALLBLADDER DISORDER [None]
  - BILIARY DYSKINESIA [None]
